FAERS Safety Report 18650122 (Version 3)
Quarter: 2021Q1

REPORT INFORMATION
  Report Type: Report from Study
  Country: US (occurrence: US)
  Receive Date: 20201222
  Receipt Date: 20210209
  Transmission Date: 20210419
  Serious: Yes (Other)
  Sender: FDA-Public Use
  Company Number: NVSC2020US338706

PATIENT
  Age: 43 Year
  Sex: Female

DRUGS (1)
  1. COSENTYX [Suspect]
     Active Substance: SECUKINUMAB
     Indication: PSORIASIS
     Dosage: UNK
     Route: 065
     Dates: start: 202009, end: 202011

REACTIONS (4)
  - COVID-19 [Recovered/Resolved]
  - Illness [Unknown]
  - Concomitant disease aggravated [Recovered/Resolved]
  - Coeliac disease [Recovered/Resolved]

NARRATIVE: CASE EVENT DATE: 202011
